FAERS Safety Report 18498233 (Version 34)
Quarter: 2024Q1

REPORT INFORMATION
  Report Type: Report from Study
  Country: CO (occurrence: CO)
  Receive Date: 20201112
  Receipt Date: 20240326
  Transmission Date: 20240410
  Serious: Yes (Other)
  Sender: FDA-Public Use
  Company Number: CO-TAKEDA-CO201932304

PATIENT
  Age: 35 Year
  Sex: Female
  Weight: 61 kg

DRUGS (27)
  1. ICATIBANT [Suspect]
     Active Substance: ICATIBANT ACETATE
     Indication: Hereditary angioedema
     Dosage: 30 MILLIGRAM
     Route: 058
     Dates: start: 20181129
  2. ICATIBANT [Suspect]
     Active Substance: ICATIBANT ACETATE
     Indication: Hereditary angioedema
     Dosage: 30 MILLIGRAM
     Route: 058
     Dates: start: 20181129
  3. ICATIBANT [Suspect]
     Active Substance: ICATIBANT ACETATE
     Dosage: 30 MILLIGRAM, TID
     Route: 058
  4. ICATIBANT [Suspect]
     Active Substance: ICATIBANT ACETATE
     Dosage: 30 MILLIGRAM, TID
     Route: 058
  5. ICATIBANT [Suspect]
     Active Substance: ICATIBANT ACETATE
     Dosage: 30 MILLIGRAM
     Route: 058
  6. ICATIBANT [Suspect]
     Active Substance: ICATIBANT ACETATE
     Dosage: 30 MILLIGRAM
     Route: 058
  7. ICATIBANT [Suspect]
     Active Substance: ICATIBANT ACETATE
     Dosage: 1 DOSAGE FORM
     Route: 058
  8. ICATIBANT [Suspect]
     Active Substance: ICATIBANT ACETATE
     Dosage: 1 DOSAGE FORM
     Route: 058
  9. ICATIBANT [Suspect]
     Active Substance: ICATIBANT ACETATE
     Dosage: 1 DOSAGE FORM
     Route: 042
  10. ICATIBANT [Suspect]
     Active Substance: ICATIBANT ACETATE
     Dosage: 1 DOSAGE FORM
     Route: 042
  11. ICATIBANT [Suspect]
     Active Substance: ICATIBANT ACETATE
     Dosage: 1 DOSAGE FORM
     Route: 058
  12. ICATIBANT [Suspect]
     Active Substance: ICATIBANT ACETATE
     Dosage: 1 DOSAGE FORM
     Route: 058
  13. TAKHZYRO [Suspect]
     Active Substance: LANADELUMAB-FLYO
     Indication: Hereditary angioedema
     Dosage: 300 MILLIGRAM, 2/MONTH
     Route: 058
     Dates: start: 20210818
  14. TAKHZYRO [Suspect]
     Active Substance: LANADELUMAB-FLYO
     Dosage: 300 MILLIGRAM, Q2WEEKS
     Route: 058
  15. TAKHZYRO [Suspect]
     Active Substance: LANADELUMAB-FLYO
     Dosage: 300 MILLIGRAM, Q2WEEKS
     Route: 058
  16. TAKHZYRO [Suspect]
     Active Substance: LANADELUMAB-FLYO
     Dosage: 300 MILLIGRAM, Q2WEEKS
     Route: 058
  17. TAKHZYRO [Suspect]
     Active Substance: LANADELUMAB-FLYO
     Dosage: 300 MILLIGRAM
     Route: 058
  18. TAKHZYRO [Suspect]
     Active Substance: LANADELUMAB-FLYO
     Dosage: 300 MILLIGRAM, 2/MONTH
     Route: 058
  19. TAKHZYRO [Suspect]
     Active Substance: LANADELUMAB-FLYO
     Dosage: 300 MILLIGRAM, Q4WEEKS
     Route: 058
  20. TAKHZYRO [Suspect]
     Active Substance: LANADELUMAB-FLYO
     Dosage: UNK UNK, 2/MONTH
     Route: 058
  21. TAKHZYRO [Suspect]
     Active Substance: LANADELUMAB-FLYO
     Dosage: 300 MILLIGRAM, MONTHLY
     Route: 058
  22. TAKHZYRO [Suspect]
     Active Substance: LANADELUMAB-FLYO
     Dosage: 300 MILLIGRAM, 2/MONTH
     Route: 058
  23. TAKHZYRO [Suspect]
     Active Substance: LANADELUMAB-FLYO
     Dosage: 300 MILLIGRAM, Q4WEEKS
     Route: 058
  24. TAKHZYRO [Suspect]
     Active Substance: LANADELUMAB-FLYO
     Dosage: 300 MILLIGRAM, 2/MONTH
     Route: 058
  25. TAKHZYRO [Suspect]
     Active Substance: LANADELUMAB-FLYO
     Dosage: 300 MILLIGRAM, MONTHLY
     Route: 058
  26. OMEPRAZOLE [Concomitant]
     Active Substance: OMEPRAZOLE
     Indication: Gastritis
     Dosage: 1 DOSAGE FORM, QD
     Route: 065
  27. DESLORATADINE [Concomitant]
     Active Substance: DESLORATADINE
     Indication: Hereditary angioedema
     Dosage: 1 DOSAGE FORM, Q12H
     Route: 065

REACTIONS (47)
  - Gingival bleeding [Recovering/Resolving]
  - Diastema [Unknown]
  - Procedural complication [Recovering/Resolving]
  - Abdominal hernia [Recovering/Resolving]
  - Tachycardia [Recovered/Resolved]
  - Infusion related reaction [Recovered/Resolved]
  - Dizziness [Recovered/Resolved]
  - Noninfective gingivitis [Recovering/Resolving]
  - Dry mouth [Recovered/Resolved]
  - Incision site complication [Recovering/Resolving]
  - Weight decreased [Unknown]
  - Oropharyngeal pain [Recovered/Resolved]
  - Tinnitus [Unknown]
  - Vertigo [Unknown]
  - Ear swelling [Unknown]
  - Post procedural inflammation [Unknown]
  - Procedural pain [Unknown]
  - Bruxism [Unknown]
  - Oropharyngeal plaque [Unknown]
  - Depressed mood [Unknown]
  - Tongue biting [Unknown]
  - Stress [Unknown]
  - Spinal pain [Recovering/Resolving]
  - Diarrhoea [Unknown]
  - Nausea [Unknown]
  - Influenza [Recovered/Resolved]
  - Gait inability [Recovered/Resolved]
  - Insomnia [Recovering/Resolving]
  - Pain [Recovered/Resolved]
  - Bone pain [Recovered/Resolved]
  - Blood pressure increased [Unknown]
  - Exposure during pregnancy [Recovered/Resolved]
  - Umbilical hernia [Unknown]
  - Eye pruritus [Recovered/Resolved]
  - Chest pain [Recovered/Resolved]
  - Hereditary angioedema [Recovered/Resolved]
  - Nasal congestion [Recovering/Resolving]
  - Pain of skin [Recovering/Resolving]
  - Burning sensation [Recovering/Resolving]
  - Pruritus [Recovered/Resolved]
  - Erythema [Recovered/Resolved]
  - Urticaria [Recovered/Resolved]
  - Headache [Recovered/Resolved]
  - Product availability issue [Unknown]
  - Prescription drug used without a prescription [Unknown]
  - Product use issue [Unknown]
  - Inappropriate schedule of product administration [Unknown]

NARRATIVE: CASE EVENT DATE: 20200306
